FAERS Safety Report 18008171 (Version 1)
Quarter: 2020Q3

REPORT INFORMATION
  Report Type: Spontaneous
  Country: US (occurrence: US)
  Receive Date: 20200710
  Receipt Date: 20200710
  Transmission Date: 20201103
  Serious: No
  Sender: FDA-Public Use
  Company Number: US-BAYER-2020-139089

PATIENT
  Age: 76 Year
  Sex: Female

DRUGS (3)
  1. VITAMIN D [VITAMIN D NOS] [Concomitant]
     Active Substance: VITAMIN D NOS
  2. B COMPLEX WITH C [Concomitant]
  3. MIRALAX [Suspect]
     Active Substance: POLYETHYLENE GLYCOL 3350
     Indication: GASTROINTESTINAL DISORDER
     Dosage: HALF OF THE CAP
     Route: 048

REACTIONS (3)
  - Product use issue [Unknown]
  - Wrong technique in product usage process [Unknown]
  - Incorrect product administration duration [None]
